FAERS Safety Report 10108613 (Version 3)
Quarter: 2014Q2

REPORT INFORMATION
  Report Type: Report from Study
  Country: JP (occurrence: JP)
  Receive Date: 20140425
  Receipt Date: 20140606
  Transmission Date: 20141212
  Serious: Yes (Death, Life-Threatening)
  Sender: FDA-Public Use
  Company Number: JP-009507513-1309JPN006732

PATIENT
  Age: 65 Year
  Sex: Female
  Weight: 39 kg

DRUGS (11)
  1. TEMOZOLOMIDE [Suspect]
     Indication: GLIOBLASTOMA MULTIFORME
     Dosage: 200 MG/M2, QD
     Route: 041
     Dates: start: 20130528, end: 20130601
  2. TEMODAL [Suspect]
     Indication: GLIOBLASTOMA MULTIFORME
     Dosage: DAILY DOSE UNKNOWN
     Route: 048
     Dates: start: 201202, end: 20130503
  3. HEPARIN SODIUM [Concomitant]
     Indication: VENOUS THROMBOSIS LIMB
     Dosage: DAILY DOSE UNKNOWN
     Route: 042
     Dates: start: 20130524, end: 20130624
  4. BAKTAR [Concomitant]
     Indication: ANTIFUNGAL PROPHYLAXIS
     Dosage: DAILY DOSE UNKNOWN
     Route: 048
     Dates: start: 20120521, end: 20130601
  5. PREDONINE [Concomitant]
     Indication: GLIOBLASTOMA MULTIFORME
     Dosage: DAILY DOSE UNKNOWN, ROUTE: NASOGASTRIC TUBE
     Route: 050
     Dates: end: 20130604
  6. TAKEPRON [Concomitant]
     Dosage: DAILY DOSE UNKNOWN, ROUTE: NASOGASTRIC TUBE
     Route: 050
     Dates: end: 20130604
  7. CALBLOCK [Concomitant]
     Dosage: DAILY DOSE UNKNOWN, ROUTE: NASOGASTRIC TUBE
     Route: 050
     Dates: end: 20130604
  8. DEPAKENE-R [Concomitant]
     Indication: PROPHYLAXIS
     Dosage: 400 MG, DAILY DOSE FREQUENCY UNKNOWN, ROUTE NASOGASTRIC
     Route: 050
     Dates: end: 20130604
  9. NATRIX [Concomitant]
     Dosage: DAILY DOSE UNKNOWN, ROUTE: NASOGASTRIC TUBE
     Route: 050
     Dates: end: 20130604
  10. OLMETEC [Concomitant]
     Dosage: DAILY DOSE UNKNOWN, ROUTE: NASOGASTRIC TUBE
     Route: 050
     Dates: end: 20130604
  11. CARDENALIN [Concomitant]
     Dosage: DAILY DOSE UNKNOWN, ROUTE NASOGASTRIC TUBE
     Route: 050
     Dates: end: 20130604

REACTIONS (2)
  - Disease progression [Fatal]
  - Venous thrombosis limb [Unknown]
